FAERS Safety Report 14927683 (Version 2)
Quarter: 2018Q2

REPORT INFORMATION
  Report Type: Report from Study
  Country: CA (occurrence: CA)
  Receive Date: 20180523
  Receipt Date: 20180614
  Transmission Date: 20180711
  Serious: Yes (Hospitalization)
  Sender: FDA-Public Use
  Company Number: CA-HLSUS-2018-CA-000769

PATIENT
  Sex: Male
  Weight: 55 kg

DRUGS (4)
  1. RISPERDAL [Concomitant]
     Active Substance: RISPERIDONE
     Indication: PSYCHOTIC DISORDER
     Dosage: 20MG
     Route: 048
     Dates: end: 20180516
  2. EPIVAL [Concomitant]
     Active Substance: DIVALPROEX SODIUM
     Indication: PSYCHOTIC DISORDER
     Dosage: 2050 MG
     Route: 048
  3. OLANZAPINE. [Concomitant]
     Active Substance: OLANZAPINE
     Indication: PSYCHOTIC DISORDER
     Dosage: 10MG
     Route: 048
  4. CLOZARIL [Suspect]
     Active Substance: CLOZAPINE
     Indication: SCHIZOAFFECTIVE DISORDER
     Dosage: 200MG BED TIME
     Route: 048
     Dates: start: 20180411, end: 20180516

REACTIONS (5)
  - Septic shock [Recovered/Resolved]
  - Respiratory distress [Recovered/Resolved]
  - Neutrophilia [Unknown]
  - Pneumonia aspiration [Recovered/Resolved]
  - Leukocytosis [Unknown]
